FAERS Safety Report 17089924 (Version 1)
Quarter: 2019Q4

REPORT INFORMATION
  Report Type: Other
  Country: JP (occurrence: JP)
  Receive Date: 20191128
  Receipt Date: 20191128
  Transmission Date: 20200122
  Serious: No
  Sender: FDA-Public Use
  Company Number: JP-LUPIN PHARMACEUTICALS INC.-2019-06242

PATIENT
  Age: 7 Decade
  Sex: Female

DRUGS (3)
  1. PRAVASTATIN NA 5MG TABLET [Suspect]
     Active Substance: PRAVASTATIN SODIUM
     Indication: HYPERLIPIDAEMIA
     Dosage: 5 MILLIGRAM, QD
     Route: 048
     Dates: start: 201807, end: 201808
  2. PRAVASTATIN NA 5MG TABLET [Suspect]
     Active Substance: PRAVASTATIN SODIUM
     Dosage: 5 MILLIGRAM, QOD
     Route: 048
     Dates: start: 201808
  3. JANUVIA [Concomitant]
     Active Substance: SITAGLIPTIN PHOSPHATE
     Indication: PRODUCT USED FOR UNKNOWN INDICATION
     Dosage: UNK
     Route: 065

REACTIONS (2)
  - Malaise [Recovered/Resolved]
  - Myalgia [Recovered/Resolved]

NARRATIVE: CASE EVENT DATE: 201807
